FAERS Safety Report 21377715 (Version 1)
Quarter: 2022Q3

REPORT INFORMATION
  Report Type: Other
  Country: DE (occurrence: DE)
  Receive Date: 20220926
  Receipt Date: 20220926
  Transmission Date: 20221026
  Serious: Yes (Hospitalization, Other)
  Sender: FDA-Public Use
  Company Number: DE-ADRED-05790-01

PATIENT

DRUGS (3)
  1. RUXOLITINIB [Suspect]
     Active Substance: RUXOLITINIB
     Indication: Product used for unknown indication
     Dosage: UNK (HAS NOW BEEN CANCELLED)
     Route: 048
  2. SODIUM PICOSULFATE [Concomitant]
     Active Substance: SODIUM PICOSULFATE
     Indication: Product used for unknown indication
     Dosage: UNK
     Route: 048
  3. METOCLOPRAMIDE [Concomitant]
     Active Substance: METOCLOPRAMIDE
     Indication: Product used for unknown indication
     Dosage: UNK
     Route: 048

REACTIONS (10)
  - Acute kidney injury [Unknown]
  - Decreased appetite [Unknown]
  - Chest pain [Unknown]
  - Abdominal pain [Unknown]
  - Infection [Unknown]
  - Dyspnoea exertional [Unknown]
  - Micturition frequency decreased [Unknown]
  - Constipation [Unknown]
  - Product prescribing error [Unknown]
  - Nausea [Unknown]
